FAERS Safety Report 4581881-8 (Version None)
Quarter: 2005Q1

REPORT INFORMATION
  Report Type: 
  Country: None (occurrence: None)
  Receive Date: 20050214
  Receipt Date: 20040329
  Transmission Date: 20050727
  Serious: No
  Sender: FDA-Public Use
  Company Number: US-GLAXOSMITHKLINE-A0504898A

PATIENT
  Age: 14 Year
  Sex: Male

DRUGS (2)
  1. LAMICTAL [Suspect]
     Indication: BIPOLAR DISORDER
     Dosage: 75MG AT NIGHT
     Route: 048
     Dates: start: 20040201
  2. SEROQUEL [Concomitant]

REACTIONS (3)
  - FATIGUE [None]
  - HYPERHIDROSIS [None]
  - PALLOR [None]
